FAERS Safety Report 21529958 (Version 1)
Quarter: 2022Q4

REPORT INFORMATION
  Report Type: Spontaneous
  Country: US (occurrence: US)
  Receive Date: 20221031
  Receipt Date: 20221031
  Transmission Date: 20230113
  Serious: No
  Sender: FDA-Public Use
  Company Number: US-LUPIN PHARMACEUTICALS INC.-2022-12534

PATIENT
  Age: 18 Year
  Sex: Female
  Weight: 70.6 kg

DRUGS (28)
  1. GABAPENTIN [Suspect]
     Active Substance: GABAPENTIN
     Indication: COVID-19
     Dosage: 300 MG, TID
     Route: 065
  2. GABAPENTIN [Suspect]
     Active Substance: GABAPENTIN
     Indication: Cough
     Dosage: DOSAGE: 300MG IN THE MORNING AND AFTERNOON AND 900MG IN THE EVENING
     Route: 065
  3. ALBUTEROL SULFATE [Suspect]
     Active Substance: ALBUTEROL SULFATE
     Indication: COVID-19
     Dosage: 5 MILLIGRAMQID
     Route: 065
  4. ALBUTEROL SULFATE [Suspect]
     Active Substance: ALBUTEROL SULFATE
     Indication: Cough
  5. DEXAMETHASONE [Suspect]
     Active Substance: DEXAMETHASONE
     Indication: COVID-19
     Dosage: 6 MG, QD
     Route: 065
  6. DEXAMETHASONE [Suspect]
     Active Substance: DEXAMETHASONE
     Indication: Cough
  7. REMDESIVIR [Suspect]
     Active Substance: REMDESIVIR
     Indication: COVID-19
     Dosage: 200 MG, SINGLE
     Route: 065
  8. REMDESIVIR [Suspect]
     Active Substance: REMDESIVIR
     Indication: Cough
     Dosage: 100 MG FOR THE NEXT 4 DAYS
     Route: 065
  9. ANAKINRA [Suspect]
     Active Substance: ANAKINRA
     Indication: COVID-19
     Dosage: 100 MG, TID
     Route: 042
  10. ANAKINRA [Suspect]
     Active Substance: ANAKINRA
     Indication: Cough
     Dosage: 300 MG, TID
     Route: 042
  11. DEXMEDETOMIDINE [Suspect]
     Active Substance: DEXMEDETOMIDINE
     Indication: COVID-19
     Dosage: UNK
     Route: 065
  12. DEXMEDETOMIDINE [Suspect]
     Active Substance: DEXMEDETOMIDINE
     Indication: Cough
  13. CISATRACURIUM [Suspect]
     Active Substance: CISATRACURIUM
     Indication: COVID-19
     Dosage: UNK
     Route: 065
  14. CISATRACURIUM [Suspect]
     Active Substance: CISATRACURIUM
     Indication: Cough
  15. IPRATROPIUM [Suspect]
     Active Substance: IPRATROPIUM
     Indication: COVID-19
     Dosage: 500 MICROGRAM, QID
     Route: 065
  16. IPRATROPIUM [Suspect]
     Active Substance: IPRATROPIUM
     Indication: Cough
  17. PROPOFOL [Suspect]
     Active Substance: PROPOFOL
     Indication: Cough
     Dosage: 30 MCG/KG/MIN BOLUS
     Route: 065
  18. PROPOFOL [Suspect]
     Active Substance: PROPOFOL
     Indication: COVID-19
     Dosage: DOSAGE: 90MCG/KG/MIN. RECEIVED MULTIPLE 35-70 MG BOLUSES AS NEEDED
     Route: 065
  19. PROPOFOL [Suspect]
     Active Substance: PROPOFOL
     Indication: Sedation
  20. ROCURONIUM [Suspect]
     Active Substance: ROCURONIUM BROMIDE
     Indication: COVID-19
     Dosage: 1 MILLIGRAM/KILOGRAM SINGLE DOSE
     Route: 065
  21. ROCURONIUM [Suspect]
     Active Substance: ROCURONIUM BROMIDE
     Indication: Cough
     Dosage: 1 MILLIGRAM/KILOGRAM TWO DOSES
     Route: 065
  22. TRAZODONE [Suspect]
     Active Substance: TRAZODONE HYDROCHLORIDE
     Indication: COVID-19
     Dosage: UNK UNK, QD (BEDTIME)
     Route: 065
  23. TRAZODONE [Suspect]
     Active Substance: TRAZODONE HYDROCHLORIDE
     Indication: Cough
  24. LIDOCAINE [Suspect]
     Active Substance: LIDOCAINE
     Indication: COVID-19
     Dosage: 40 MG, QID
     Route: 065
  25. LIDOCAINE [Suspect]
     Active Substance: LIDOCAINE
     Indication: Cough
  26. DEXTROMETHORPHAN [Suspect]
     Active Substance: DEXTROMETHORPHAN
     Indication: COVID-19
     Dosage: 10 MG, SINGLE
     Route: 065
  27. DEXTROMETHORPHAN [Suspect]
     Active Substance: DEXTROMETHORPHAN
     Indication: Cough
  28. LINEZOLID [Concomitant]
     Active Substance: LINEZOLID
     Indication: Staphylococcal bacteraemia
     Dosage: UNK
     Route: 065

REACTIONS (1)
  - Off label use [Unknown]
